FAERS Safety Report 6321673-2 (Version None)
Quarter: 2009Q3

REPORT INFORMATION
  Report Type: 
  Country: None (occurrence: None)
  Receive Date: 20090821
  Receipt Date: 20090821
  Transmission Date: 20100115
  Serious: Yes (Disabling)
  Sender: FDA-Public Use
  Company Number: None

PATIENT
  Age: 55 Year
  Sex: Female
  Weight: 77.1115 kg

DRUGS (1)
  1. ESKALITH [Suspect]
     Dosage: 350MG 3X DAILY MOUTH
     Route: 048
     Dates: start: 19860401, end: 20090801

REACTIONS (2)
  - DENTAL CARIES [None]
  - ORAL MUCOSA EROSION [None]
